FAERS Safety Report 16005478 (Version 2)
Quarter: 2019Q1

REPORT INFORMATION
  Report Type: Report from Study
  Country: KR (occurrence: KR)
  Receive Date: 20190226
  Receipt Date: 20190301
  Transmission Date: 20190418
  Serious: Yes (Hospitalization, Disabling)
  Sender: FDA-Public Use
  Company Number: KR-AMGEN-KORCT2019027245

PATIENT
  Age: 64 Year
  Sex: Male
  Weight: 72.8 kg

DRUGS (23)
  1. LEVEMIR [Concomitant]
     Active Substance: INSULIN DETEMIR
     Dosage: 22 IU, UNK
     Route: 058
     Dates: start: 20120118
  2. GABALIN [Concomitant]
     Route: 048
     Dates: start: 20190213
  3. DIAMICRON [Concomitant]
     Active Substance: GLICLAZIDE
     Dosage: 120 MG, UNK
     Route: 048
     Dates: start: 20160629
  4. LESCOL XL [Concomitant]
     Active Substance: FLUVASTATIN SODIUM
     Dosage: 80 MG, UNK
     Route: 048
     Dates: start: 20180219
  5. PANTOLINE [Concomitant]
     Active Substance: PANTOPRAZOLE SODIUM
     Dosage: 40 MG, UNK
     Route: 048
     Dates: start: 20181219
  6. DIOVAN [Concomitant]
     Active Substance: VALSARTAN
     Dosage: 40-80 MG, UNK
     Route: 048
     Dates: start: 20170814
  7. NIFEDIX [Concomitant]
     Dosage: 30 MG, UNK
     Route: 048
     Dates: start: 20190121
  8. ETELCALCETIDE [Suspect]
     Active Substance: ETELCALCETIDE
     Indication: HYPERPARATHYROIDISM SECONDARY
     Dosage: 5 MG, UNK
     Route: 065
     Dates: start: 20181210
  9. ADALAT [Concomitant]
     Active Substance: NIFEDIPINE
     Dosage: 60 MG, UNK
     Route: 048
     Dates: start: 20190116
  10. RENVELA [Concomitant]
     Active Substance: SEVELAMER CARBONATE
     Dosage: 1600 MG, UNK
     Route: 048
     Dates: start: 20181107, end: 20181204
  11. CURAN [Concomitant]
     Active Substance: RANITIDINE HYDROCHLORIDE
     Dosage: 150 MG, UNK
     Route: 048
     Dates: start: 20090930
  12. TAGEN-F [Concomitant]
     Dosage: 170 MG, UNK
     Route: 048
     Dates: start: 20180306
  13. BERASIL [Concomitant]
     Active Substance: BERAPROST
     Dosage: 0.02 MG, UNK
     Route: 048
     Dates: start: 20180720
  14. POSHUIN [Concomitant]
     Dosage: 710 MG, UNK
     Route: 048
     Dates: start: 20190216
  15. HARNAL [Concomitant]
     Active Substance: TAMSULOSIN HYDROCHLORIDE
     Dosage: 0.2 MG, UNK
     Route: 048
     Dates: start: 20161221
  16. LETIRIZINE [Concomitant]
     Active Substance: LEVOCETIRIZINE
     Dosage: 5 MG, UNK
     Route: 048
     Dates: start: 20181119, end: 20181126
  17. LASIX [Concomitant]
     Active Substance: FUROSEMIDE
     Dosage: 40 MG, UNK
     Route: 048
     Dates: start: 20121030
  18. ZEMIGLO [Concomitant]
     Dosage: 50 MG, UNK
     Route: 048
     Dates: start: 20140618
  19. LYRICA [Concomitant]
     Active Substance: PREGABALIN
     Dosage: 75 MG, UNK
     Route: 048
     Dates: start: 20140416
  20. DESOWEN [Concomitant]
     Active Substance: DESONIDE
     Dosage: 120 ML, UNK
     Route: 061
     Dates: start: 20181119
  21. RINO EBASTEL [Concomitant]
     Dosage: 1 UNK, UNK
     Route: 048
     Dates: start: 20190114, end: 20190220
  22. PROSCAR [Concomitant]
     Active Substance: FINASTERIDE
     Dosage: 5 MG, UNK
     Route: 048
     Dates: start: 20180801
  23. PLAVITOR [Concomitant]
     Dosage: 75 MG, UNK
     Route: 048
     Dates: start: 20100414

REACTIONS (1)
  - Angina pectoris [Recovered/Resolved]

NARRATIVE: CASE EVENT DATE: 20190218
